FAERS Safety Report 5462115-9 (Version None)
Quarter: 2007Q3

REPORT INFORMATION
  Report Type: 
  Country: None (occurrence: None)
  Receive Date: 20070920
  Receipt Date: 20070502
  Transmission Date: 20080115
  Serious: No
  Sender: FDA-Public Use
  Company Number: A0649444A

PATIENT
  Age: 51 Year
  Sex: Male

DRUGS (1)
  1. ABREVA [Suspect]
     Dates: start: 20070419, end: 20070423

REACTIONS (3)
  - DRUG INEFFECTIVE [None]
  - LIP DRY [None]
  - PARAESTHESIA ORAL [None]
